FAERS Safety Report 5819000-X (Version None)
Quarter: 2008Q3

REPORT INFORMATION
  Report Type: 
  Country: None (occurrence: None)
  Receive Date: 20080717
  Receipt Date: 20080709
  Transmission Date: 20090109
  Serious: Yes (Life-Threatening)
  Sender: FDA-Public Use
  Company Number: GXKR2008GB06414

PATIENT
  Age: 67 Year
  Sex: Female

DRUGS (8)
  1. TRIMETHOPRIM [Suspect]
     Indication: URINARY TRACT INFECTION
     Dosage: 200 MG, BID, ORAL
     Route: 048
     Dates: start: 20080502
  2. CALCIPOTRIOL (CALCIPOTRIOL) [Concomitant]
  3. CLOTRIMAZOLE [Concomitant]
  4. DICLOFENAC SODIUM [Concomitant]
  5. FLUCONAZOLE [Concomitant]
  6. HRT [Concomitant]
  7. OTOMIZE (DEXAMETHASONE, NEOMYCIN SULFATE) [Concomitant]
  8. POLYTAR (COAL TAR) LIQUID [Concomitant]

REACTIONS (6)
  - BLOOD PRESSURE IMMEASURABLE [None]
  - ERYTHEMA [None]
  - LIP SWELLING [None]
  - PRURITUS [None]
  - SWELLING FACE [None]
  - TREMOR [None]
